FAERS Safety Report 4762806-9 (Version None)
Quarter: 2005Q3

REPORT INFORMATION
  Report Type: 
  Country: None (occurrence: None)
  Receive Date: 20050907
  Receipt Date: 20050905
  Transmission Date: 20060218
  Serious: Yes (Life-Threatening, Disabling)
  Sender: FDA-Public Use
  Company Number: PHFR2005GB02945

PATIENT
  Age: 47 Year
  Sex: Male

DRUGS (1)
  1. TERBINAFINE [Suspect]
     Indication: DERMATOPHYTOSIS
     Dosage: 250MG PER DAY
     Route: 065
     Dates: start: 20040925

REACTIONS (1)
  - GUILLAIN-BARRE SYNDROME [None]
